FAERS Safety Report 6387362-3 (Version None)
Quarter: 2009Q3

REPORT INFORMATION
  Report Type: 
  Country: None (occurrence: None)
  Receive Date: 20090930
  Receipt Date: 20090914
  Transmission Date: 20100115
  Serious: Yes (Hospitalization)
  Sender: FDA-Public Use
  Company Number: 2009AL000703

PATIENT
  Age: 77 Year
  Sex: Female

DRUGS (30)
  1. DIGOXIN [Suspect]
     Indication: HEART RATE IRREGULAR
     Dosage: 0.25MG, DAILY, PO
     Route: 048
  2. THEOPHYLLINE [Concomitant]
  3. MORPHINE [Concomitant]
  4. LEVOTHYROXINE [Concomitant]
  5. COREG [Concomitant]
  6. PLAVIX [Concomitant]
  7. VYTORIN [Concomitant]
  8. LOVAZA [Concomitant]
  9. POTASSIUM CHLORIDE [Concomitant]
  10. ALPRAZOLAM [Concomitant]
  11. METHASONE [Concomitant]
  12. OYST-CAL/D [Concomitant]
  13. HYDROXYZ HCL [Concomitant]
  14. THEO-24 [Concomitant]
  15. ALBUTEROL [Concomitant]
  16. OYSTER SHELL TAB [Concomitant]
  17. ZOLPIDEM [Concomitant]
  18. ISOSORBIDE [Concomitant]
  19. CARVEDILOL [Concomitant]
  20. METHYLPRED [Concomitant]
  21. ADVAIR DISKUS 100/50 [Concomitant]
  22. PROMETH/COD [Concomitant]
  23. LANTUS [Concomitant]
  24. HUMALOG [Concomitant]
  25. DILAUDID [Concomitant]
  26. UNIPHYL [Concomitant]
  27. LASIX [Concomitant]
  28. SINGULAIR [Concomitant]
  29. ASPIRIN [Concomitant]
  30. HEPARIN [Concomitant]

REACTIONS (16)
  - ANXIETY [None]
  - BACK PAIN [None]
  - BLOOD CHOLESTEROL INCREASED [None]
  - BLOOD GLUCOSE INCREASED [None]
  - CHEST PAIN [None]
  - CORONARY ARTERY DISEASE [None]
  - DYSPNOEA [None]
  - ECONOMIC PROBLEM [None]
  - HERPES ZOSTER [None]
  - HYPERHIDROSIS [None]
  - MULTIPLE INJURIES [None]
  - MUSCULOSKELETAL CHEST PAIN [None]
  - NAUSEA [None]
  - PAIN [None]
  - THERAPEUTIC AGENT TOXICITY [None]
  - VOMITING [None]
